FAERS Safety Report 5325940-0 (Version None)
Quarter: 2007Q2

REPORT INFORMATION
  Report Type: 
  Country: None (occurrence: None)
  Receive Date: 20070514
  Receipt Date: 20070514
  Transmission Date: 20071010
  Serious: Yes (Other)
  Sender: FDA-Public Use
  Company Number: None

PATIENT
  Sex: Female

DRUGS (2)
  1. AMBIEN [Suspect]
     Indication: DEPRESSION
     Dosage: 10MG PO QHS PO
     Route: 048
     Dates: start: 20060101
  2. AMBIEN [Suspect]
     Indication: INSOMNIA
     Dosage: 10MG PO QHS PO
     Route: 048
     Dates: start: 20060101

REACTIONS (4)
  - DRUG INEFFECTIVE [None]
  - DRUG INTOLERANCE [None]
  - NAUSEA [None]
  - PHARMACEUTICAL PRODUCT COMPLAINT [None]
